FAERS Safety Report 13369465 (Version 1)
Quarter: 2017Q1

REPORT INFORMATION
  Report Type: Spontaneous
  Country: US (occurrence: US)
  Receive Date: 20170324
  Receipt Date: 20170324
  Transmission Date: 20170429
  Serious: Yes (Hospitalization, Other)
  Sender: FDA-Public Use
  Company Number: US-GLAXOSMITHKLINE-US2017041053

PATIENT
  Sex: Male

DRUGS (1)
  1. ADVAIR DISKUS [Suspect]
     Active Substance: FLUTICASONE PROPIONATE\SALMETEROL XINAFOATE
     Indication: PRODUCT USED FOR UNKNOWN INDICATION
     Dosage: 1 PUFF(S), BID
     Route: 055

REACTIONS (9)
  - Internal haemorrhage [Unknown]
  - Chronic kidney disease [Unknown]
  - Influenza like illness [Recovered/Resolved]
  - Atrial fibrillation [Unknown]
  - Asthenia [Unknown]
  - Transfusion [Unknown]
  - Diabetes mellitus [Unknown]
  - Anaemia [Unknown]
  - Memory impairment [Unknown]

NARRATIVE: CASE EVENT DATE: 2012
